FAERS Safety Report 5854040-6 (Version None)
Quarter: 2008Q3

REPORT INFORMATION
  Report Type: 
  Country: None (occurrence: None)
  Receive Date: 20080822
  Receipt Date: 20080807
  Transmission Date: 20090109
  Serious: Yes (Hospitalization)
  Sender: FDA-Public Use
  Company Number: US-MERCK-0808USA02636

PATIENT
  Age: 65 Year
  Sex: Male

DRUGS (10)
  1. COZAAR [Suspect]
     Route: 048
  2. COZAAR [Suspect]
     Route: 048
  3. PLAVIX [Concomitant]
     Route: 048
  4. METOPROLOL [Concomitant]
     Route: 065
  5. METOPROLOL [Concomitant]
     Route: 065
  6. VIOXX [Concomitant]
     Route: 048
  7. FLOMAX [Concomitant]
     Route: 048
  8. LASIX [Concomitant]
     Route: 048
  9. NORVASC [Concomitant]
     Route: 048
  10. IRON (UNSPECIFIED) [Concomitant]
     Route: 048

REACTIONS (18)
  - ACUTE MYOCARDIAL INFARCTION [None]
  - AORTIC DILATATION [None]
  - AORTIC DISSECTION [None]
  - BUNDLE BRANCH BLOCK RIGHT [None]
  - CARDIAC FAILURE CONGESTIVE [None]
  - CARDIOMEGALY [None]
  - CORONARY ARTERY DISEASE [None]
  - HYPERLIPIDAEMIA [None]
  - HYPOKALAEMIA [None]
  - INTERSTITIAL LUNG DISEASE [None]
  - LUNG DISORDER [None]
  - MEDIASTINAL MASS [None]
  - OSTEOARTHRITIS [None]
  - PERICARDIAL CYST [None]
  - PNEUMONIA [None]
  - RENAL CYST [None]
  - RENAL IMPAIRMENT [None]
  - URINARY TRACT INFECTION [None]
